FAERS Safety Report 20676335 (Version 2)
Quarter: 2022Q3

REPORT INFORMATION
  Report Type: Spontaneous
  Country: US (occurrence: None)
  Receive Date: 20220405
  Receipt Date: 20220921
  Transmission Date: 20221027
  Serious: Yes (Other)
  Sender: FDA-Public Use
  Company Number: US-ROCHE-3066922

PATIENT
  Sex: Female

DRUGS (2)
  1. ACTEMRA [Suspect]
     Active Substance: TOCILIZUMAB
     Indication: Giant cell arteritis
     Route: 058
     Dates: start: 201804, end: 202201
  2. WARFARIN [Concomitant]
     Active Substance: WARFARIN

REACTIONS (6)
  - Thrombosis [Unknown]
  - Visual impairment [Unknown]
  - Hypoacusis [Unknown]
  - Myopia [Unknown]
  - Neovascular age-related macular degeneration [Unknown]
  - Altered pitch perception [Unknown]
